FAERS Safety Report 26031697 (Version 3)
Quarter: 2025Q4

REPORT INFORMATION
  Report Type: Report from Study
  Country: EU (occurrence: EU)
  Receive Date: 20251112
  Receipt Date: 20251202
  Transmission Date: 20260118
  Serious: Yes (Other)
  Sender: SANOFI AVENTIS
  Company Number: EU-SA-2025SA307483

PATIENT
  Age: 36 Year
  Sex: Male
  Weight: 59 kg

DRUGS (6)
  1. TEPLIZUMAB [Suspect]
     Active Substance: TEPLIZUMAB
     Indication: Diabetes prophylaxis
     Dosage: 65 UG/M2, 1X
     Route: 042
     Dates: start: 20251007, end: 20251007
  2. TEPLIZUMAB [Suspect]
     Active Substance: TEPLIZUMAB
     Dosage: 125 UG/M2, 1X
     Route: 042
     Dates: start: 20251008, end: 20251008
  3. TEPLIZUMAB [Suspect]
     Active Substance: TEPLIZUMAB
     Dosage: 500 UG/M2, 1X
     Route: 042
     Dates: start: 20251009, end: 20251009
  4. TEPLIZUMAB [Suspect]
     Active Substance: TEPLIZUMAB
     Dosage: 125 UG/M2, 1X
     Route: 042
     Dates: start: 20251010, end: 20251010
  5. TEPLIZUMAB [Suspect]
     Active Substance: TEPLIZUMAB
     Dosage: 1030 UG/M2, 1X
     Route: 042
     Dates: start: 20251011, end: 20251012
  6. TEPLIZUMAB [Suspect]
     Active Substance: TEPLIZUMAB
     Dosage: 1030 UG/M2, 1X
     Route: 042
     Dates: start: 20251014, end: 20251017

REACTIONS (14)
  - Hepatic cytolysis [Recovered/Resolved]
  - Cytokine release syndrome [Recovered/Resolved]
  - Hyperthermia [Recovered/Resolved]
  - Tachycardia [Recovered/Resolved]
  - Hypotension [Recovered/Resolved]
  - Neutropenia [Recovered/Resolved]
  - Bradycardia [Unknown]
  - Transaminases increased [Recovering/Resolving]
  - Lymphopenia [Not Recovered/Not Resolved]
  - Pyrexia [Recovering/Resolving]
  - Nausea [Recovering/Resolving]
  - Diarrhoea [Recovering/Resolving]
  - Blood bilirubin increased [Recovered/Resolved]
  - Blood glucose increased [Unknown]

NARRATIVE: CASE EVENT DATE: 20251001
